FAERS Safety Report 17551669 (Version 2)
Quarter: 2020Q2

REPORT INFORMATION
  Report Type: Spontaneous
  Country: CA (occurrence: CA)
  Receive Date: 20200317
  Receipt Date: 20200421
  Transmission Date: 20200713
  Serious: Yes (Hospitalization)
  Sender: FDA-Public Use
  Company Number: CA-BAYER-2020-042269

PATIENT
  Age: 72 Year
  Sex: Female

DRUGS (1)
  1. AVELOX [Suspect]
     Active Substance: MOXIFLOXACIN HYDROCHLORIDE
     Indication: URINARY TRACT INFECTION
     Dosage: 3 G, ONCE
     Route: 048
     Dates: start: 20200307

REACTIONS (4)
  - Electrocardiogram QT prolonged [Unknown]
  - Loss of consciousness [Unknown]
  - Head injury [Unknown]
  - Wrong product administered [None]

NARRATIVE: CASE EVENT DATE: 202003
